FAERS Safety Report 15957934 (Version 3)
Quarter: 2019Q2

REPORT INFORMATION
  Report Type: Spontaneous
  Country: IT (occurrence: IT)
  Receive Date: 20190213
  Receipt Date: 20190625
  Transmission Date: 20190711
  Serious: Yes (Other)
  Sender: FDA-Public Use
  Company Number: IT-PFIZER INC-2019057166

PATIENT
  Age: 89 Year
  Sex: Female

DRUGS (7)
  1. NORVASC [Suspect]
     Active Substance: AMLODIPINE BESYLATE
     Indication: HYPERTENSIVE HEART DISEASE
     Dosage: 5 MG, 1X/DAY
     Route: 048
     Dates: start: 20190112, end: 20190116
  2. CARDURA [Suspect]
     Active Substance: DOXAZOSIN MESYLATE
     Indication: HYPERTENSIVE HEART DISEASE
     Dosage: 4 MG, 1X/DAY
     Route: 048
     Dates: start: 20190112, end: 20190116
  3. FORZAAR [Suspect]
     Active Substance: HYDROCHLOROTHIAZIDE\LOSARTAN POTASSIUM
     Indication: HYPERTENSIVE HEART DISEASE
     Dosage: 100 MG, 1X/DAY
     Route: 048
     Dates: start: 20190112, end: 20190116
  4. CARDIRENE [Suspect]
     Active Substance: ASPIRIN DL-LYSINE
     Indication: HYPERTENSIVE HEART DISEASE
     Dosage: UNK
  5. KCL RETARD [Suspect]
     Active Substance: POTASSIUM CHLORIDE
     Indication: HYPERTENSIVE HEART DISEASE
     Dosage: 2 DF, 1X/DAY
     Route: 048
     Dates: start: 20190113, end: 20190116
  6. LASIX [Suspect]
     Active Substance: FUROSEMIDE
     Indication: HYPERTENSIVE HEART DISEASE
     Dosage: 50 MG, 1X/DAY
     Route: 048
     Dates: start: 20190112, end: 20190116
  7. AUGMENTIN [Suspect]
     Active Substance: AMOXICILLIN\CLAVULANATE POTASSIUM
     Dosage: 2 G, 1X/DAY
     Route: 048
     Dates: start: 20190112, end: 20190116

REACTIONS (1)
  - Blood potassium decreased [Recovered/Resolved]

NARRATIVE: CASE EVENT DATE: 20190116
